FAERS Safety Report 4662538-1 (Version None)
Quarter: 2005Q2

REPORT INFORMATION
  Report Type: 
  Country: None (occurrence: None)
  Receive Date: 20050512
  Receipt Date: 20050506
  Transmission Date: 20051028
  Serious: Yes (Death, Hospitalization, Other)
  Sender: FDA-Public Use
  Company Number: 2004088700

PATIENT
  Age: 71 Year
  Sex: Male

DRUGS (5)
  1. LIPITOR [Suspect]
     Indication: BLOOD CHOLESTEROL INCREASED
     Dosage: 20 MG (20 MG, 1 IN 1 D), ORAL
     Route: 048
     Dates: start: 20040504, end: 20040618
  2. LEVOTHYROXINE SODIUM [Concomitant]
  3. SOTALOL HCL [Concomitant]
  4. ASPIRIN [Concomitant]
  5. ARTHROTEC (CICLOFENAC SODIUM, MISOPROSTOL) [Concomitant]

REACTIONS (7)
  - ASTHENIA [None]
  - BLOOD CHOLESTEROL DECREASED [None]
  - FATIGUE [None]
  - HEPATIC FAILURE [None]
  - MALAISE [None]
  - RENAL FAILURE [None]
  - RHABDOMYOLYSIS [None]
